FAERS Safety Report 11726194 (Version 9)
Quarter: 2016Q2

REPORT INFORMATION
  Report Type: Spontaneous
  Country: GB (occurrence: GB)
  Receive Date: 20151112
  Receipt Date: 20160504
  Transmission Date: 20160815
  Serious: Yes (Other)
  Sender: FDA-Public Use
  Company Number: GB-ROCHE-1640557

PATIENT
  Sex: Female

DRUGS (2)
  1. HERCEPTIN [Suspect]
     Active Substance: TRASTUZUMAB
     Indication: PRODUCT USED FOR UNKNOWN INDICATION
     Dosage: LAST DOSE :07/AUG/2015, CYCLE 6
     Route: 058
  2. TAMOXIFEN [Concomitant]
     Active Substance: TAMOXIFEN

REACTIONS (27)
  - Decreased appetite [Recovering/Resolving]
  - Night sweats [Unknown]
  - Hypertension [Unknown]
  - Electrocardiogram abnormal [Unknown]
  - Diarrhoea [Unknown]
  - Weight decreased [Unknown]
  - Wound [Unknown]
  - Pain in extremity [Unknown]
  - Pneumonia [Unknown]
  - Urinary tract infection [Recovered/Resolved]
  - Lower respiratory tract infection [Unknown]
  - Neuropathy peripheral [Not Recovered/Not Resolved]
  - Dyspnoea exertional [Recovering/Resolving]
  - Asthenia [Recovering/Resolving]
  - Metastases to lung [Unknown]
  - Herpes virus infection [Recovered/Resolved]
  - Pulmonary mass [Unknown]
  - Pain [Not Recovered/Not Resolved]
  - Fatigue [Not Recovered/Not Resolved]
  - Lung neoplasm [Unknown]
  - Blister [Unknown]
  - Headache [Unknown]
  - Vision blurred [Unknown]
  - Dizziness [Unknown]
  - Procedural pain [Unknown]
  - Arthralgia [Unknown]
  - Palpitations [Unknown]
